FAERS Safety Report 17659222 (Version 1)
Quarter: 2020Q2

REPORT INFORMATION
  Report Type: Spontaneous
  Country: US (occurrence: US)
  Receive Date: 20200413
  Receipt Date: 20200413
  Transmission Date: 20200713
  Serious: No
  Sender: FDA-Public Use
  Company Number: US-DRREDDYS-USA/USA/20/0121663

PATIENT
  Age: 47 Year
  Sex: Male
  Weight: 86.5 kg

DRUGS (1)
  1. BUPRENORPHINE AND NALOXONE SUBLINGUAL FILM 2 MG/0.5 MG AND 8MG/2MG [Suspect]
     Active Substance: BUPRENORPHINE\NALOXONE
     Indication: PAIN
     Dosage: 8MG/2MG
     Route: 060
     Dates: start: 20200325

REACTIONS (2)
  - Product use in unapproved indication [Unknown]
  - Product packaging quantity issue [Unknown]
